FAERS Safety Report 19282834 (Version 1)
Quarter: 2021Q2

REPORT INFORMATION
  Report Type: Spontaneous
  Country: IT (occurrence: IT)
  Receive Date: 20210521
  Receipt Date: 20210521
  Transmission Date: 20210717
  Serious: Yes (Other)
  Sender: FDA-Public Use
  Company Number: IT-AMGEN-ITASP2021074368

PATIENT
  Age: 76 Year

DRUGS (1)
  1. MVASI [Suspect]
     Active Substance: BEVACIZUMAB-AWWB
     Indication: AGE-RELATED MACULAR DEGENERATION
     Dosage: 0.5 MICROGRAM, CYCLICAL
     Route: 065
     Dates: start: 20200624, end: 20210331

REACTIONS (3)
  - Visual impairment [Unknown]
  - Macular oedema [Unknown]
  - Drug ineffective [Unknown]

NARRATIVE: CASE EVENT DATE: 20210415
